FAERS Safety Report 8501453-X (Version None)
Quarter: 2012Q3

REPORT INFORMATION
  Report Type: 
  Country: None (occurrence: None)
  Receive Date: 20120710
  Receipt Date: 20120704
  Transmission Date: 20120928
  Serious: Yes (Hospitalization, Other)
  Sender: FDA-Public Use
  Company Number: BR-ROCHE-775624

PATIENT
  Sex: Female
  Weight: 49 kg

DRUGS (31)
  1. MABTHERA [Suspect]
     Route: 042
  2. CALCIUM CARBONATE [Concomitant]
  3. ARAVA [Concomitant]
  4. AZATHIOPRINE [Concomitant]
  5. ASPIRIN [Concomitant]
  6. OMEPRAZOLE [Concomitant]
  7. METFORMIN HCL [Concomitant]
  8. METFORMIN HCL [Concomitant]
  9. ALDACTONE [Concomitant]
  10. MABTHERA [Suspect]
  11. AMYTRIL [Concomitant]
  12. ENDOFOLIN [Concomitant]
  13. AMYTRIL [Concomitant]
  14. LOSARTAN POTASSIUM [Concomitant]
  15. NPH INSULIN [Concomitant]
  16. MABTHERA [Suspect]
     Indication: SJOGREN'S SYNDROME
     Route: 042
  17. MABTHERA [Suspect]
  18. AMLODIPINE [Concomitant]
  19. CLONAZEPAM [Concomitant]
     Dosage: 2 DROPS
  20. AMYTRIL [Concomitant]
  21. OMEPRAZOLE [Concomitant]
  22. DOMPERIDON [Concomitant]
  23. VASOGARD [Concomitant]
  24. REUQUINOL [Concomitant]
     Dosage: HALF
  25. TORLOS [Concomitant]
  26. LASIX [Concomitant]
  27. CARVEDILOL [Concomitant]
  28. METICORTEN [Concomitant]
  29. ATENOLOL [Concomitant]
  30. DEPURAN [Concomitant]
     Dosage: 5 DROPS
  31. ACETYLSALICYLIC ACID SRT [Concomitant]

REACTIONS (15)
  - WEIGHT DECREASED [None]
  - CONVULSION [None]
  - SYSTEMIC LUPUS ERYTHEMATOSUS [None]
  - MUSCULOSKELETAL DISORDER [None]
  - CARDIAC DISORDER [None]
  - DIABETES MELLITUS [None]
  - MYOCARDIAL INFARCTION [None]
  - GENERALISED OEDEMA [None]
  - HYPOGLYCAEMIA [None]
  - FALL [None]
  - LIMB INJURY [None]
  - ASTHENIA [None]
  - PNEUMONIA [None]
  - POLYMYOSITIS [None]
  - SKIN ULCER [None]
